FAERS Safety Report 9351010 (Version 1)
Quarter: 2013Q2

REPORT INFORMATION
  Report Type: Report from Study
  Country: TR (occurrence: TR)
  Receive Date: 20130617
  Receipt Date: 20130617
  Transmission Date: 20140414
  Serious: Yes (Other)
  Sender: FDA-Public Use
  Company Number: TR-SANOFI-AVENTIS-2013SA060638

PATIENT
  Sex: 0

DRUGS (10)
  1. PETHIDINE HYDROCHLORIDE [Suspect]
     Indication: POSTOPERATIVE ANALGESIA
     Dosage: INTERMITTENT DOSES
     Route: 040
  2. PARACETAMOL [Concomitant]
     Route: 048
  3. CEFAZOLIN SODIUM [Concomitant]
     Indication: ANTIBIOTIC PROPHYLAXIS
     Route: 042
  4. THIOPENTAL SODIUM [Concomitant]
     Indication: GENERAL ANAESTHESIA
     Dosage: DOSE: 3 TO 5 MG/KG
  5. ROCURONIUM BROMIDE [Concomitant]
     Indication: GENERAL ANAESTHESIA
  6. SEVOFLURANE [Concomitant]
     Indication: GENERAL ANAESTHESIA
  7. NITROUS OXIDE [Concomitant]
     Indication: GENERAL ANAESTHESIA
  8. MIDAZOLAM [Concomitant]
  9. ATROPINE SULFATE [Concomitant]
     Route: 030
  10. OXYGEN [Concomitant]

REACTIONS (1)
  - Ileus [Unknown]
